FAERS Safety Report 17323661 (Version 1)
Quarter: 2020Q1

REPORT INFORMATION
  Report Type: Spontaneous
  Country: SI (occurrence: SI)
  Receive Date: 20200127
  Receipt Date: 20200127
  Transmission Date: 20200409
  Serious: Yes (Other)
  Sender: FDA-Public Use
  Company Number: SI-TEVA-2020-SI-1173826

PATIENT
  Age: 69 Year
  Sex: Male

DRUGS (3)
  1. OKSALIPLATIN TEVA 5 MG/ML [Suspect]
     Active Substance: OXALIPLATIN
     Indication: RECTAL CANCER
     Dosage: MG/ML
     Route: 042
     Dates: start: 20191021, end: 20191223
  2. ASPIRIN 100 MG [Concomitant]
     Active Substance: ASPIRIN
     Dosage: UNSPECIFIED, 100 MG
  3. CAPECITABINE. [Concomitant]
     Active Substance: CAPECITABINE
     Dosage: UNSPECIFIED, ACCORDING TO THE SCHEME

REACTIONS (3)
  - Oxygen saturation decreased [Recovered/Resolved]
  - Hypertension [Recovered/Resolved]
  - Dyspnoea [Recovered/Resolved]

NARRATIVE: CASE EVENT DATE: 20191202
